FAERS Safety Report 9420381 (Version 1)
Quarter: 2013Q3

REPORT INFORMATION
  Report Type: Spontaneous
  Country: US (occurrence: US)
  Receive Date: 20130725
  Receipt Date: 20130725
  Transmission Date: 20140515
  Serious: No
  Sender: FDA-Public Use
  Company Number: US-ABBOTT-13P-163-1051155-00

PATIENT
  Age: 69 Year
  Sex: Female
  Weight: 56.3 kg

DRUGS (2)
  1. SYNTHROID [Suspect]
     Indication: HYPOTHYROIDISM
     Dates: start: 2003
  2. CHOLESTYRAMINE [Concomitant]
     Indication: COLITIS

REACTIONS (1)
  - Diarrhoea [Not Recovered/Not Resolved]
